FAERS Safety Report 6951205-7 (Version None)
Quarter: 2010Q3

REPORT INFORMATION
  Report Type: 
  Country: None (occurrence: None)
  Receive Date: 20100828
  Receipt Date: 20100317
  Transmission Date: 20110219
  Serious: No
  Sender: FDA-Public Use
  Company Number: US-ABBOTT-10P-163-0632918-00

PATIENT
  Sex: Female
  Weight: 57.658 kg

DRUGS (2)
  1. NIASPAN [Suspect]
     Indication: HIGH DENSITY LIPOPROTEIN DECREASED
     Dosage: AT NIGHT
     Dates: start: 20100226, end: 20100308
  2. CRESTOR [Concomitant]
     Indication: PRODUCT USED FOR UNKNOWN INDICATION

REACTIONS (6)
  - DIZZINESS [None]
  - MALAISE [None]
  - MELAENA [None]
  - NASOPHARYNGITIS [None]
  - RASH MACULAR [None]
  - SKIN BURNING SENSATION [None]
